FAERS Safety Report 21088466 (Version 1)
Quarter: 2022Q3

REPORT INFORMATION
  Report Type: Spontaneous
  Country: US (occurrence: None)
  Receive Date: 20220715
  Receipt Date: 20220715
  Transmission Date: 20221026
  Serious: No
  Sender: FDA-Public Use
  Company Number: None

PATIENT
  Age: 27 Year
  Sex: Female
  Weight: 100.8 kg

DRUGS (6)
  1. VIVITROL [Suspect]
     Active Substance: NALTREXONE
     Indication: Drug abuse
     Dosage: FREQUENCY : MONTHLY;?OTHER ROUTE : INJECTION TO BUTT MUSCLE;?
     Route: 050
     Dates: start: 20220711
  2. VIVITROL [Suspect]
     Active Substance: NALTREXONE
     Indication: Alcohol abuse
  3. LEVOTHYROXINE SODIUM [Concomitant]
     Active Substance: LEVOTHYROXINE SODIUM
  4. NEXPLANON [Concomitant]
     Active Substance: ETONOGESTREL
  5. VITAMIN B12 [Concomitant]
     Active Substance: CYANOCOBALAMIN
  6. VITAMINS [Concomitant]
     Active Substance: VITAMINS

REACTIONS (1)
  - Diarrhoea [None]

NARRATIVE: CASE EVENT DATE: 20220711
